FAERS Safety Report 8611596-8 (Version None)
Quarter: 2012Q3

REPORT INFORMATION
  Report Type: 
  Country: None (occurrence: None)
  Receive Date: 20120822
  Receipt Date: 20120816
  Transmission Date: 20120928
  Serious: Yes (Death, Other)
  Sender: FDA-Public Use
  Company Number: PHHY2012CL068455

PATIENT
  Sex: Female

DRUGS (3)
  1. IMATINIB MESYLATE [Suspect]
     Indication: ACUTE LYMPHOCYTIC LEUKAEMIA
     Dosage: UNK UKN, UNK
     Route: 065
     Dates: start: 20120217
  2. CHEMOTHERAPEUTICS [Concomitant]
     Indication: ACUTE LYMPHOCYTIC LEUKAEMIA
     Dosage: UNK UKN, UNK
     Route: 065
     Dates: start: 20120217
  3. IMATINIB MESYLATE [Suspect]
     Dosage: 600 MG, UNK
     Route: 048
     Dates: start: 20120301

REACTIONS (4)
  - ACUTE LEUKAEMIA [None]
  - VOMITING [None]
  - HEADACHE [None]
  - LEUKAEMIA RECURRENT [None]
